FAERS Safety Report 9726147 (Version 1)
Quarter: 2013Q4

REPORT INFORMATION
  Report Type: Spontaneous
  Country: GB (occurrence: None)
  Receive Date: 20131127
  Receipt Date: 20131127
  Transmission Date: 20140711
  Serious: Yes (Hospitalization)
  Sender: FDA-Public Use
  Company Number: GB-DEXPHARM-20131002

PATIENT
  Age: 34 Year
  Sex: Female

DRUGS (3)
  1. CHLORHEXIDINE [Suspect]
     Indication: CAESAREAN SECTION
     Dosage: TOPICAL
     Route: 061
     Dates: start: 20131024, end: 20131024
  2. BENZYLPENICILLIN [Suspect]
     Indication: PROLONGED RUPTURE OF MEMBRANES
     Dosage: 1.5 G GRAM(S), INTRAVENOUS (NOT OTHERWISE SPECIFIED)
     Route: 042
     Dates: start: 20131024, end: 20131024
  3. DIAMORPHINE [Suspect]
     Indication: CAESAREAN SECTION
     Dosage: 3 MG MILLIGRAM(S), EPIDURAL
     Route: 008
     Dates: start: 20131024, end: 20131024

REACTIONS (2)
  - Anaphylactic reaction [None]
  - Maternal exposure during delivery [None]
